FAERS Safety Report 22745020 (Version 3)
Quarter: 2023Q4

REPORT INFORMATION
  Report Type: Report from Study
  Country: CA (occurrence: CA)
  Receive Date: 20230725
  Receipt Date: 20231130
  Transmission Date: 20240109
  Serious: Yes (Other)
  Sender: FDA-Public Use
  Company Number: CA-JNJFOC-20230738613

PATIENT
  Age: 58 Year
  Sex: Female
  Weight: 104 kg

DRUGS (2)
  1. REMICADE [Suspect]
     Active Substance: INFLIXIMAB
     Indication: Psoriatic arthropathy
     Dosage: EXPIRY DATE: FEB-2026, 28-MAR-2026
     Route: 042
  2. JARDIANCE [Suspect]
     Active Substance: EMPAGLIFLOZIN
     Indication: Glycosylated haemoglobin increased
     Route: 065
     Dates: start: 2023

REACTIONS (6)
  - Carpal tunnel syndrome [Unknown]
  - Fungal infection [Not Recovered/Not Resolved]
  - Atrophy [Unknown]
  - Hiatus hernia [Unknown]
  - Glycosylated haemoglobin increased [Not Recovered/Not Resolved]
  - Off label use [Unknown]

NARRATIVE: CASE EVENT DATE: 20230901
